FAERS Safety Report 15160452 (Version 1)
Quarter: 2018Q3

REPORT INFORMATION
  Report Type: Spontaneous
  Country: ES (occurrence: ES)
  Receive Date: 20180718
  Receipt Date: 20180718
  Transmission Date: 20181010
  Serious: Yes (Life-Threatening, Hospitalization)
  Sender: FDA-Public Use
  Company Number: ES-JNJFOC-20180713334

PATIENT
  Age: 18 Year
  Sex: Female

DRUGS (5)
  1. EXFORGE [Suspect]
     Active Substance: AMLODIPINE BESYLATE\VALSARTAN
     Indication: SUICIDE ATTEMPT
     Dosage: 5 COUNTS PER SECOND (CPS); IN TOTAL
     Route: 048
     Dates: start: 20171201, end: 20171201
  2. ESCITALOPRAM [Suspect]
     Active Substance: ESCITALOPRAM OXALATE
     Indication: SUICIDE ATTEMPT
     Dosage: 5 COUNTS PER SECOND (CPS)
     Route: 048
     Dates: start: 20171201, end: 20171201
  3. IBUPROFENO (1769A) [Suspect]
     Active Substance: IBUPROFEN
     Indication: SUICIDE ATTEMPT
     Dosage: 400 MG X 7 COUNTS PER SECOND (CPS); IN TOTAL
     Route: 048
     Dates: start: 20171201, end: 20171201
  4. IBUPROFENO (1769A) [Suspect]
     Active Substance: IBUPROFEN
     Route: 048
  5. PARACETAMOL [Suspect]
     Active Substance: ACETAMINOPHEN
     Indication: SUICIDE ATTEMPT
     Dosage: 12GR DAY; IN TOTAL
     Route: 048
     Dates: start: 20171201, end: 20171201

REACTIONS (2)
  - Hypocoagulable state [Recovered/Resolved]
  - Hepatitis [Recovered/Resolved]

NARRATIVE: CASE EVENT DATE: 20171202
